FAERS Safety Report 17913377 (Version 1)
Quarter: 2020Q2

REPORT INFORMATION
  Report Type: Spontaneous
  Country: US (occurrence: US)
  Receive Date: 20200618
  Receipt Date: 20200618
  Transmission Date: 20200714
  Serious: No
  Sender: FDA-Public Use
  Company Number: US-THERAPEUTICSMD-2020TMD01748

PATIENT
  Age: 60 Year
  Sex: Female
  Weight: 68.93 kg

DRUGS (2)
  1. IMVEXXY [Suspect]
     Active Substance: ESTRADIOL
     Dosage: 10 ?G, 2X/WEEK BEFORE BED (MONDAY AND THURSDAY)
     Route: 067
     Dates: start: 2020, end: 20200402
  2. IMVEXXY [Suspect]
     Active Substance: ESTRADIOL
     Indication: VULVOVAGINAL DRYNESS
     Dosage: 10 ?G, 1X/DAY BEFORE BED
     Route: 067
     Dates: start: 202001, end: 2020

REACTIONS (5)
  - Off label use [Recovered/Resolved]
  - Vulvovaginal pruritus [Recovering/Resolving]
  - Vulvovaginal erythema [Recovering/Resolving]
  - Vulvovaginal pain [Recovering/Resolving]
  - Vulvovaginal discomfort [Recovering/Resolving]

NARRATIVE: CASE EVENT DATE: 202001
